FAERS Safety Report 9558674 (Version 1)
Quarter: 2013Q3

REPORT INFORMATION
  Report Type: Spontaneous
  Country: US (occurrence: US)
  Receive Date: 20130926
  Receipt Date: 20130926
  Transmission Date: 20140515
  Serious: No
  Sender: FDA-Public Use
  Company Number: US-BIOGENIDEC-2013BI045613

PATIENT
  Age: 66 Year
  Sex: Female

DRUGS (4)
  1. TECFIDERA [Suspect]
     Indication: MULTIPLE SCLEROSIS
     Route: 048
  2. FORTICAL [Concomitant]
  3. CALCIUM-MAGNESIUM-ZINC [Concomitant]
  4. VITAMIN C [Concomitant]

REACTIONS (3)
  - Constipation [Unknown]
  - Decreased appetite [Unknown]
  - Nervousness [Unknown]
